FAERS Safety Report 12043690 (Version 2)
Quarter: 2016Q2

REPORT INFORMATION
  Report Type: Report from Study
  Country: US (occurrence: US)
  Receive Date: 20160208
  Receipt Date: 20160615
  Transmission Date: 20160815
  Serious: Yes (Other)
  Sender: FDA-Public Use
  Company Number: US-AMGEN-USASL2016013810

PATIENT
  Age: 58 Year
  Sex: Female

DRUGS (3)
  1. ENBREL [Suspect]
     Active Substance: ETANERCEPT
     Dosage: UNK
     Route: 065
  2. ENBREL [Suspect]
     Active Substance: ETANERCEPT
     Indication: PSORIASIS
     Dosage: 50 MG, QWK
     Route: 065
  3. ENBREL [Suspect]
     Active Substance: ETANERCEPT
     Indication: ARTHRITIS
     Dosage: 50 MG, 2 TIMES/WK
     Route: 065

REACTIONS (13)
  - Cast application [Unknown]
  - Psoriasis [Unknown]
  - Carpal tunnel decompression [Unknown]
  - Cancer surgery [Unknown]
  - Feeling abnormal [Unknown]
  - Memory impairment [Unknown]
  - Intentional product misuse [Unknown]
  - Injection site pain [Unknown]
  - Decreased immune responsiveness [Unknown]
  - Breast cancer [Unknown]
  - Trigger finger [Unknown]
  - Arthritis [Unknown]
  - Pruritus generalised [Unknown]

NARRATIVE: CASE EVENT DATE: 2011
